FAERS Safety Report 5070593-2 (Version None)
Quarter: 2006Q3

REPORT INFORMATION
  Report Type: 
  Country: None (occurrence: None)
  Receive Date: 20060804
  Receipt Date: 20050706
  Transmission Date: 20061208
  Serious: No
  Sender: FDA-Public Use
  Company Number: US-GLAXOSMITHKLINE-A0565154A

PATIENT
  Sex: Male

DRUGS (2)
  1. NICORETTE (MINT) [Suspect]
     Route: 048
     Dates: start: 20050518
  2. COMMIT [Suspect]
     Route: 048

REACTIONS (2)
  - EAR DISCOMFORT [None]
  - INTENTIONAL DRUG MISUSE [None]
